FAERS Safety Report 21657638 (Version 2)
Quarter: 2023Q1

REPORT INFORMATION
  Report Type: Spontaneous
  Country: ES (occurrence: ES)
  Receive Date: 20221129
  Receipt Date: 20230227
  Transmission Date: 20230417
  Serious: Yes (Hospitalization, Other)
  Sender: FDA-Public Use
  Company Number: ES-PFIZER INC-PV202200113119

PATIENT
  Age: 72 Year
  Sex: Female
  Weight: 43 kg

DRUGS (2)
  1. PALBOCICLIB [Suspect]
     Active Substance: PALBOCICLIB
     Dosage: UNK, DAILY
     Route: 048
     Dates: start: 20180223
  2. LETROZOLE [Concomitant]
     Active Substance: LETROZOLE
     Indication: Breast cancer
     Dosage: UNK, DAILY
     Dates: start: 20180223

REACTIONS (1)
  - Fibula fracture [Recovered/Resolved]

NARRATIVE: CASE EVENT DATE: 20220128
